FAERS Safety Report 8978901 (Version 1)
Quarter: 2012Q4

REPORT INFORMATION
  Report Type: Spontaneous
  Country: US (occurrence: None)
  Receive Date: 20121218
  Receipt Date: 20121218
  Transmission Date: 20130627
  Serious: Yes (Hospitalization)
  Sender: FDA-Public Use
  Company Number: None

PATIENT
  Age: 63 Year
  Sex: Male
  Weight: 68.2 kg

DRUGS (3)
  1. ACTHAR [Suspect]
     Dosage: 80 unites injection
     Dates: start: 20120829
  2. ACTHAR [Suspect]
     Dates: start: 20121118
  3. ACTHAR [Concomitant]

REACTIONS (1)
  - Blood pressure increased [None]
